FAERS Safety Report 18278171 (Version 3)
Quarter: 2021Q3

REPORT INFORMATION
  Report Type: Spontaneous
  Country: US (occurrence: US)
  Receive Date: 20200917
  Receipt Date: 20210813
  Transmission Date: 20211014
  Serious: Yes (Other)
  Sender: FDA-Public Use
  Company Number: US-NOVOPROD-753036

PATIENT
  Age: 68 Year
  Sex: Female
  Weight: 76.1 kg

DRUGS (6)
  1. TRESIBA [Concomitant]
     Active Substance: INSULIN DEGLUDEC
     Dosage: 45 IU
     Route: 058
     Dates: start: 2019
  2. OZEMPIC [Suspect]
     Active Substance: SEMAGLUTIDE
     Indication: TYPE 2 DIABETES MELLITUS
     Dosage: 0.5 MG, QW
     Route: 058
     Dates: start: 20200101, end: 202007
  3. TRESIBA [Concomitant]
     Active Substance: INSULIN DEGLUDEC
     Indication: TYPE 2 DIABETES MELLITUS
     Dosage: 41?42 IU QD
     Route: 058
     Dates: start: 2019, end: 2019
  4. ATORVASTATIN [Concomitant]
     Active Substance: ATORVASTATIN
     Indication: BLOOD CHOLESTEROL INCREASED
     Dosage: 80 MG
     Route: 048
  5. VASCEPA [Concomitant]
     Active Substance: ICOSAPENT ETHYL
     Indication: BLOOD TRIGLYCERIDES INCREASED
     Dosage: UNK
  6. OZEMPIC [Suspect]
     Active Substance: SEMAGLUTIDE
     Dosage: 1 MG, QW
     Route: 058
     Dates: start: 202007

REACTIONS (6)
  - Glycosylated haemoglobin increased [Recovered/Resolved]
  - Product communication issue [Recovered/Resolved]
  - Visual impairment [Recovering/Resolving]
  - Wrong technique in product usage process [Recovered/Resolved]
  - Stress [Unknown]
  - Blood glucose increased [Recovered/Resolved]

NARRATIVE: CASE EVENT DATE: 2020
